FAERS Safety Report 16022241 (Version 2)
Quarter: 2019Q2

REPORT INFORMATION
  Report Type: Spontaneous
  Country: NO (occurrence: NO)
  Receive Date: 20190301
  Receipt Date: 20190402
  Transmission Date: 20190711
  Serious: Yes (Death, Hospitalization, Other)
  Sender: FDA-Public Use
  Company Number: NO-ABBVIE-19K-122-2686676-00

PATIENT
  Age: 68 Year
  Sex: Male

DRUGS (2)
  1. VENCLYXTO [Suspect]
     Active Substance: VENETOCLAX
     Indication: CHRONIC LYMPHOCYTIC LEUKAEMIA
     Route: 048
     Dates: start: 20181124
  2. VENCLYXTO [Suspect]
     Active Substance: VENETOCLAX
     Route: 048
     Dates: start: 20190130

REACTIONS (10)
  - Bone marrow disorder [Unknown]
  - Death [Fatal]
  - Neutropenia [Unknown]
  - Aspergillus infection [Unknown]
  - Cytopenia [Unknown]
  - Anaemia [Unknown]
  - Full blood count increased [Unknown]
  - Therapeutic product effect decreased [Unknown]
  - Chronic lymphocytic leukaemia [Unknown]
  - Thrombocytopenia [Unknown]

NARRATIVE: CASE EVENT DATE: 20190213
